FAERS Safety Report 21519060 (Version 1)
Quarter: 2022Q4

REPORT INFORMATION
  Report Type: Spontaneous
  Country: JP (occurrence: JP)
  Receive Date: 20221028
  Receipt Date: 20221028
  Transmission Date: 20230112
  Serious: Yes (Other)
  Sender: FDA-Public Use
  Company Number: JP-ADVANZ PHARMA-202210007219

PATIENT

DRUGS (6)
  1. ZONISAMIDE [Suspect]
     Active Substance: ZONISAMIDE
     Indication: Product used for unknown indication
     Dosage: UNK (TRERIEF)
     Route: 048
     Dates: start: 201505
  2. ZONISAMIDE [Suspect]
     Active Substance: ZONISAMIDE
     Indication: Parkinson^s disease
  3. CARBIDOPA\LEVODOPA [Concomitant]
     Active Substance: CARBIDOPA\LEVODOPA
     Indication: Tremor
     Dosage: UNK
  4. CABERGOLINE [Concomitant]
     Active Substance: CABERGOLINE
     Indication: Tremor
     Dosage: UNK
  5. AMANTADINE [Concomitant]
     Active Substance: AMANTADINE
     Indication: Tremor
     Dosage: UNK
  6. ISTRADEFYLLINE [Concomitant]
     Active Substance: ISTRADEFYLLINE
     Indication: Tremor
     Dosage: UNK

REACTIONS (5)
  - Osteoarthritis [Not Recovered/Not Resolved]
  - Back pain [Not Recovered/Not Resolved]
  - Angina pectoris [Unknown]
  - Spinal deformity [Unknown]
  - Fall [Unknown]

NARRATIVE: CASE EVENT DATE: 20170901
